FAERS Safety Report 8517221-9 (Version None)
Quarter: 2012Q3

REPORT INFORMATION
  Report Type: 
  Country: None (occurrence: None)
  Receive Date: 20120718
  Receipt Date: 20120709
  Transmission Date: 20120928
  Serious: Yes (Other)
  Sender: FDA-Public Use
  Company Number: CN-BAYER-2012-070637

PATIENT
  Age: 81 Year
  Sex: Male
  Weight: 62 kg

DRUGS (2)
  1. SODIUM CHLORIDE [Suspect]
  2. AVELOX [Suspect]
     Indication: PNEUMONIA
     Dosage: 0.4 G, UNK
     Route: 042
     Dates: start: 20111206, end: 20111211

REACTIONS (4)
  - DEPRESSION [None]
  - COMA [None]
  - MENTAL DISORDER [None]
  - DIZZINESS [None]
